FAERS Safety Report 12253914 (Version 2)
Quarter: 2016Q2

REPORT INFORMATION
  Report Type: Report from Study
  Country: LB (occurrence: LB)
  Receive Date: 20160411
  Receipt Date: 20160503
  Transmission Date: 20160815
  Serious: Yes (Hospitalization)
  Sender: FDA-Public Use
  Company Number: PHHY2016LB046502

PATIENT
  Sex: Male

DRUGS (2)
  1. EXJADE [Suspect]
     Active Substance: DEFERASIROX
     Dosage: UNK
     Route: 048
     Dates: start: 20160401
  2. EXJADE [Suspect]
     Active Substance: DEFERASIROX
     Indication: THALASSAEMIA
     Dosage: 1500 MG, (3 X 500 MG) QD
     Route: 048

REACTIONS (9)
  - Cholecystitis infective [Unknown]
  - Vomiting [Recovering/Resolving]
  - Abdominal pain upper [Recovering/Resolving]
  - Nausea [Unknown]
  - Weight decreased [Unknown]
  - Hepatic infection [Unknown]
  - Jaundice [Unknown]
  - Pancreatitis [Unknown]
  - Pyrexia [Recovering/Resolving]
